FAERS Safety Report 11024416 (Version 1)
Quarter: 2015Q2

REPORT INFORMATION
  Report Type: Spontaneous
  Country: JP (occurrence: JP)
  Receive Date: 20150414
  Receipt Date: 20150414
  Transmission Date: 20150821
  Serious: Yes (Other)
  Sender: FDA-Public Use
  Company Number: JP-AMGEN-JPNSP2015016364

PATIENT
  Age: 80 Year
  Sex: Female

DRUGS (2)
  1. PRALIA [Suspect]
     Active Substance: DENOSUMAB
     Indication: OSTEOPOROSIS
     Dosage: 60 MG, UNK
     Route: 058
     Dates: start: 20131207
  2. BENET [Concomitant]
     Active Substance: RISEDRONATE SODIUM
     Indication: PRODUCT USED FOR UNKNOWN INDICATION
     Dosage: 17.5 UNK, QWK
     Route: 048
     Dates: start: 20050604, end: 20131207

REACTIONS (2)
  - Gingival hypoplasia [Unknown]
  - Gingival abscess [Unknown]

NARRATIVE: CASE EVENT DATE: 201410
